FAERS Safety Report 18999187 (Version 1)
Quarter: 2021Q1

REPORT INFORMATION
  Report Type: Spontaneous
  Country: US (occurrence: US)
  Receive Date: 20210311
  Receipt Date: 20210311
  Transmission Date: 20210420
  Serious: Yes (Hospitalization, Other)
  Sender: FDA-Public Use
  Company Number: US-ASTRAZENECA-2021A107483

PATIENT
  Age: 62 Year
  Sex: Male
  Weight: 104.8 kg

DRUGS (87)
  1. GABAPENTIN. [Concomitant]
     Active Substance: GABAPENTIN
     Indication: PAIN
  2. LEVEMIR [Concomitant]
     Active Substance: INSULIN DETEMIR
     Indication: DIABETES MELLITUS
  3. BIDIL [Concomitant]
     Active Substance: HYDRALAZINE HYDROCHLORIDE\ISOSORBIDE DINITRATE
  4. CHLORZOXAZONE. [Concomitant]
     Active Substance: CHLORZOXAZONE
  5. HYDROCODONE/ACETAMINOPHEN [Concomitant]
     Active Substance: ACETAMINOPHEN\HYDROCODONE
  6. AMOXICILLIN. [Concomitant]
     Active Substance: AMOXICILLIN
  7. PREDNISONE. [Concomitant]
     Active Substance: PREDNISONE
  8. STARLIX [Concomitant]
     Active Substance: NATEGLINIDE
  9. RENVELA [Concomitant]
     Active Substance: SEVELAMER CARBONATE
  10. CIALIS [Concomitant]
     Active Substance: TADALAFIL
  11. NITROGLYCERIN. [Concomitant]
     Active Substance: NITROGLYCERIN
  12. GLIMEPIRIDE. [Concomitant]
     Active Substance: GLIMEPIRIDE
     Indication: DIABETES MELLITUS
  13. WARFARIN [Concomitant]
     Active Substance: WARFARIN
     Indication: URINARY BLADDER HAEMORRHAGE
  14. ALLOPURINOL. [Concomitant]
     Active Substance: ALLOPURINOL
  15. VOLTAREN [Concomitant]
     Active Substance: DICLOFENAC SODIUM
  16. VITAMIN D3 [Concomitant]
     Active Substance: CHOLECALCIFEROL
  17. CLOTRIAMZOLE?BETAMETHASONE [Concomitant]
  18. DOXAZOSIN [Concomitant]
     Active Substance: DOXAZOSIN MESYLATE
  19. POTASSIUM CHLORIDE. [Concomitant]
     Active Substance: POTASSIUM CHLORIDE
  20. MUPIROCIN. [Concomitant]
     Active Substance: MUPIROCIN
  21. HYDROCORTISONE. [Concomitant]
     Active Substance: HYDROCORTISONE
  22. ALLEGRA [Concomitant]
     Active Substance: FEXOFENADINE HYDROCHLORIDE
  23. METOLAZONE. [Concomitant]
     Active Substance: METOLAZONE
  24. CEFADROXIL. [Concomitant]
     Active Substance: CEFADROXIL
  25. EPOGEN [Concomitant]
     Active Substance: ERYTHROPOIETIN
  26. PREVACID [Suspect]
     Active Substance: LANSOPRAZOLE
     Indication: GASTROOESOPHAGEAL REFLUX DISEASE
     Route: 065
     Dates: start: 2010, end: 2016
  27. SIMVASTATIN. [Concomitant]
     Active Substance: SIMVASTATIN
     Indication: BLOOD CHOLESTEROL ABNORMAL
  28. INTEGRA [Concomitant]
     Active Substance: DIETARY SUPPLEMENT
     Indication: HYPOTENSION
  29. FUROSEMIDE. [Concomitant]
     Active Substance: FUROSEMIDE
     Indication: HYPERTENSION
  30. MONTELUKAST [Concomitant]
     Active Substance: MONTELUKAST SODIUM
  31. CALCITRIOL. [Concomitant]
     Active Substance: CALCITRIOL
  32. CARVEDILOL. [Concomitant]
     Active Substance: CARVEDILOL
     Indication: HYPERTENSION
  33. NABUMETONE. [Concomitant]
     Active Substance: NABUMETONE
  34. METOPROLOL SUCCINATE. [Concomitant]
     Active Substance: METOPROLOL SUCCINATE
  35. CEPHALEXIN. [Concomitant]
     Active Substance: CEPHALEXIN
  36. GENTAMICIN. [Concomitant]
     Active Substance: GENTAMICIN
  37. METOPROLOL. [Concomitant]
     Active Substance: METOPROLOL
  38. TUMS [Concomitant]
     Active Substance: CALCIUM CARBONATE
  39. FERRITIN [Concomitant]
     Active Substance: FERRITIN
  40. PRILOSEC [Suspect]
     Active Substance: OMEPRAZOLE MAGNESIUM
     Indication: GASTROOESOPHAGEAL REFLUX DISEASE
     Route: 048
     Dates: start: 2010, end: 2016
  41. ASMANEX [Concomitant]
     Active Substance: MOMETASONE FUROATE
  42. ACETAMINOPHEN AND CODEINE [Concomitant]
     Active Substance: ACETAMINOPHEN\CODEINE PHOSPHATE
  43. DOXYCYCLINE HYCLATE. [Concomitant]
     Active Substance: DOXYCYCLINE HYCLATE
  44. FINASTERIDE. [Concomitant]
     Active Substance: FINASTERIDE
  45. TAMIFLU [Concomitant]
     Active Substance: OSELTAMIVIR PHOSPHATE
  46. CENTRUM SILVER [Concomitant]
     Active Substance: MINERALS\VITAMINS
  47. PRILOSEC [Suspect]
     Active Substance: OMEPRAZOLE MAGNESIUM
     Indication: GASTROOESOPHAGEAL REFLUX DISEASE
     Dosage: GENERIC
     Route: 065
     Dates: start: 2014, end: 2015
  48. PROTONIX [Suspect]
     Active Substance: PANTOPRAZOLE SODIUM
     Indication: GASTROOESOPHAGEAL REFLUX DISEASE
     Dosage: GENERIC
     Route: 065
     Dates: start: 2017
  49. AMLODIPINE? BENAZ [Concomitant]
  50. AMOX?CLAV [Concomitant]
     Active Substance: AMOXICILLIN\CLAVULANATE POTASSIUM
  51. SUPREP BOWEL PREP [Concomitant]
     Active Substance: MAGNESIUM SULFATE\POTASSIUM SULFATE\SODIUM SULFATE
  52. CLINDAMYCIN. [Concomitant]
     Active Substance: CLINDAMYCIN
  53. METRONIDAZOLE. [Concomitant]
     Active Substance: METRONIDAZOLE
  54. MINOCYCLINE [Concomitant]
     Active Substance: MINOCYCLINE HYDROCHLORIDE
  55. LOSARTAN. [Concomitant]
     Active Substance: LOSARTAN
  56. ALKA?SELTZER [Concomitant]
     Active Substance: ANHYDROUS CITRIC ACID\ASPIRIN\SODIUM BICARBONATE
  57. CLONAZEPAM. [Concomitant]
     Active Substance: CLONAZEPAM
  58. COMBIVENT [Concomitant]
     Active Substance: ALBUTEROL SULFATE\IPRATROPIUM BROMIDE
  59. PREVACID [Suspect]
     Active Substance: LANSOPRAZOLE
     Indication: GASTROOESOPHAGEAL REFLUX DISEASE
     Dosage: GENERIC
     Route: 065
     Dates: start: 2013, end: 2014
  60. PROTONIX [Suspect]
     Active Substance: PANTOPRAZOLE SODIUM
     Indication: GASTROOESOPHAGEAL REFLUX DISEASE
     Route: 065
     Dates: start: 2014, end: 2017
  61. FLUTICASONE. [Concomitant]
     Active Substance: FLUTICASONE
  62. BREO ELLIPTA [Concomitant]
     Active Substance: FLUTICASONE FUROATE\VILANTEROL TRIFENATATE
  63. PROAIR HFA [Concomitant]
     Active Substance: ALBUTEROL SULFATE
  64. XARELTO [Concomitant]
     Active Substance: RIVAROXABAN
  65. LEVOFLOXACIN. [Concomitant]
     Active Substance: LEVOFLOXACIN
  66. POTASSIUM [Concomitant]
     Active Substance: POTASSIUM
  67. DARBEPOETIN [Concomitant]
     Active Substance: DARBEPOETIN ALFA
  68. ATORVASTATIN [Concomitant]
     Active Substance: ATORVASTATIN
  69. ROLAIDS [Concomitant]
     Active Substance: CALCIUM CARBONATE\MAGNESIUM HYDROXIDE
  70. COUMADIN [Concomitant]
     Active Substance: WARFARIN SODIUM
  71. QUINIDINE SULFATE. [Concomitant]
     Active Substance: QUINIDINE SULFATE
  72. LISINOPRIL. [Concomitant]
     Active Substance: LISINOPRIL
     Indication: HYPERTENSION
  73. ASPIRIN. [Concomitant]
     Active Substance: ASPIRIN
     Indication: CARDIAC DISORDER
  74. HUMULIN NOS [Concomitant]
     Active Substance: INSULIN HUMAN
  75. CYCLOBENZAPRINE. [Concomitant]
     Active Substance: CYCLOBENZAPRINE
  76. PROCHAMBER [Concomitant]
  77. CEFDINIR. [Concomitant]
     Active Substance: CEFDINIR
  78. AZITHROMYCIN ANHYDROUS. [Concomitant]
     Active Substance: AZITHROMYCIN ANHYDROUS
  79. FERROUS SULFATE. [Concomitant]
     Active Substance: FERROUS SULFATE
  80. POLY HIST [Concomitant]
  81. CROMOLYN [Concomitant]
     Active Substance: CROMOLYN
  82. CIPRO [Concomitant]
     Active Substance: CIPROFLOXACIN HYDROCHLORIDE
  83. GLIPIZIDE. [Concomitant]
     Active Substance: GLIPIZIDE
  84. MIRALAX [Concomitant]
     Active Substance: POLYETHYLENE GLYCOL 3350
  85. VIAGRA [Concomitant]
     Active Substance: SILDENAFIL CITRATE
  86. SULFAMETHOXAZOLE/ TMP [Concomitant]
  87. DOCUSATE SODIUM. [Concomitant]
     Active Substance: DOCUSATE SODIUM

REACTIONS (6)
  - Renal failure [Unknown]
  - Chronic kidney disease [Not Recovered/Not Resolved]
  - Nephrogenic anaemia [Unknown]
  - End stage renal disease [Not Recovered/Not Resolved]
  - Gastrooesophageal reflux disease [Not Recovered/Not Resolved]
  - Acute kidney injury [Unknown]

NARRATIVE: CASE EVENT DATE: 2014
